FAERS Safety Report 12736104 (Version 1)
Quarter: 2016Q3

REPORT INFORMATION
  Report Type: Spontaneous
  Country: JP (occurrence: JP)
  Receive Date: 20160912
  Receipt Date: 20160912
  Transmission Date: 20161109
  Serious: Yes (Life-Threatening, Hospitalization, Other)
  Sender: FDA-Public Use
  Company Number: JP-BAYER-2016-162981

PATIENT
  Age: 83 Year
  Sex: Female
  Weight: 47.6 kg

DRUGS (4)
  1. IOPAMIRON [Suspect]
     Active Substance: IOPAMIDOL
     Indication: COMPUTERISED TOMOGRAM ABDOMEN
     Dosage: 90 ML, ONCE (3 ML/SEC FOR 30 SECONDS)
     Route: 040
     Dates: start: 20160728, end: 20160728
  2. MANGANESE CHLORIDE [Concomitant]
     Active Substance: MANGANESE CHLORIDE
     Indication: COMPUTERISED TOMOGRAM
     Dosage: UNK
     Route: 048
     Dates: start: 20160728, end: 20160728
  3. IOPAMIRON [Suspect]
     Active Substance: IOPAMIDOL
     Indication: PANCREATIC CYST
  4. BAYASPIRIN [Suspect]
     Active Substance: ASPIRIN
     Dosage: UNK, OM
     Route: 048

REACTIONS (6)
  - Mouth breathing [None]
  - Pallor [Recovered/Resolved]
  - Oxygen saturation immeasurable [Recovered/Resolved]
  - Respiratory arrest [Recovered/Resolved]
  - Cardio-respiratory arrest [Recovered/Resolved]
  - Nausea [None]

NARRATIVE: CASE EVENT DATE: 20160728
